FAERS Safety Report 14649974 (Version 1)
Quarter: 2018Q1

REPORT INFORMATION
  Report Type: Spontaneous
  Country: RS (occurrence: RS)
  Receive Date: 20180316
  Receipt Date: 20180316
  Transmission Date: 20180509
  Serious: Yes (Other)
  Sender: FDA-Public Use
  Company Number: RS-BAYER-2018-047793

PATIENT
  Age: 66 Year
  Sex: Male

DRUGS (1)
  1. ASPIRIN PROTECT 100 MG [Suspect]
     Active Substance: ASPIRIN
     Dosage: UNK

REACTIONS (2)
  - Acute myocardial infarction [None]
  - Vascular stent thrombosis [None]

NARRATIVE: CASE EVENT DATE: 20180119
